FAERS Safety Report 4400845-8 (Version None)
Quarter: 2004Q3

REPORT INFORMATION
  Report Type: 
  Country: None (occurrence: None)
  Receive Date: 20040907
  Receipt Date: 20030702
  Transmission Date: 20050211
  Serious: No
  Sender: FDA-Public Use
  Company Number: US-BRISTOL-MYERS SQUIBB COMPANY-12316402

PATIENT
  Age: 66 Year
  Sex: Male
  Weight: 85 kg

DRUGS (9)
  1. COUMADIN [Suspect]
     Indication: AORTIC VALVE REPLACEMENT
     Dosage: DOSE: 2 1/2 TABLETS OF 5 MG STRENGTH. FORMER DOSE: 7 MG/D (X 6-7 YEARS).
     Route: 048
  2. NEORAL [Concomitant]
  3. CELLCEPT [Concomitant]
  4. PREDNISONE [Concomitant]
  5. ACYCLOVIR [Concomitant]
  6. RANITIDINE [Concomitant]
  7. CLONIDINE HCL [Concomitant]
  8. HYDRALAZINE [Concomitant]
  9. MULTIVITAMIN [Concomitant]

REACTIONS (1)
  - INTERNATIONAL NORMALISED RATIO ABNORMAL [None]
